FAERS Safety Report 24217791 (Version 1)
Quarter: 2024Q3

REPORT INFORMATION
  Report Type: Spontaneous
  Country: CN (occurrence: CN)
  Receive Date: 20240816
  Receipt Date: 20240816
  Transmission Date: 20241016
  Serious: Yes (Life-Threatening)
  Sender: EAGLE
  Company Number: CN-EAGLE PHARMACEUTICALS, INC.-CN-2024EAG000198

PATIENT
  Age: 72 Year
  Sex: Male
  Weight: 70.03 kg

DRUGS (5)
  1. REMIMAZOLAM [Suspect]
     Active Substance: REMIMAZOLAM
     Indication: General anaesthesia
     Dosage: 5 MILLIGRAM
     Route: 042
     Dates: start: 20240801
  2. PENEHYCLIDINE HYDROCHLORIDE [Suspect]
     Active Substance: PENEHYCLIDINE HYDROCHLORIDE
     Indication: Induction of anaesthesia
     Dosage: 0.5 MILLIGRAM
     Route: 042
     Dates: start: 20240801
  3. SUFENTANIL CITRATE [Suspect]
     Active Substance: SUFENTANIL CITRATE
     Indication: Induction of anaesthesia
     Dosage: 25 MICROGRAM
     Route: 042
     Dates: start: 20240801
  4. PROPOFOL [Suspect]
     Active Substance: PROPOFOL
     Indication: Induction of anaesthesia
     Dosage: 30 MILLIGRAM
     Route: 042
     Dates: start: 20240801
  5. VECURONIUM BROMIDE [Suspect]
     Active Substance: VECURONIUM BROMIDE
     Indication: Muscle relaxant therapy
     Dosage: 8 MILLIGRAM
     Route: 042
     Dates: start: 20240801

REACTIONS (1)
  - Shock [Unknown]

NARRATIVE: CASE EVENT DATE: 20240801
